FAERS Safety Report 23411174 (Version 1)
Quarter: 2024Q1

REPORT INFORMATION
  Report Type: Spontaneous
  Country: US (occurrence: US)
  Receive Date: 20240117
  Receipt Date: 20240117
  Transmission Date: 20240410
  Serious: No
  Sender: FDA-Public Use
  Company Number: US-FERRINGPH-2023FE00635

PATIENT
  Age: 73 Year
  Sex: Female
  Weight: 50.794 kg

DRUGS (3)
  1. CLENPIQ [Suspect]
     Active Substance: ANHYDROUS CITRIC ACID\MAGNESIUM OXIDE\SODIUM PICOSULFATE
     Indication: Bowel preparation
     Dosage: UNK, 1 BOTTLE
     Route: 048
     Dates: start: 20230206, end: 20230206
  2. FLONASE [Concomitant]
     Active Substance: FLUTICASONE PROPIONATE
     Indication: Nasal polyps
     Route: 045
  3. FLONASE [Concomitant]
     Active Substance: FLUTICASONE PROPIONATE
     Indication: Hypersensitivity

REACTIONS (7)
  - Muscle spasms [Recovered/Resolved]
  - Cold sweat [Recovered/Resolved]
  - Tremor [Recovered/Resolved]
  - Decreased appetite [Recovered/Resolved]
  - Abdominal discomfort [Unknown]
  - Dizziness [Recovered/Resolved]
  - Nausea [Recovered/Resolved]

NARRATIVE: CASE EVENT DATE: 20230206
